FAERS Safety Report 16256696 (Version 2)
Quarter: 2019Q3

REPORT INFORMATION
  Report Type: Report from Study
  Country: JP (occurrence: JP)
  Receive Date: 20190430
  Receipt Date: 20190710
  Transmission Date: 20191004
  Serious: Yes (Life-Threatening, Hospitalization, Other)
  Sender: FDA-Public Use
  Company Number: JP-SAKK-2019SA117652AA

PATIENT
  Age: 60 Year
  Sex: Male
  Weight: 71 kg

DRUGS (8)
  1. ALEMTUZUMAB [Suspect]
     Active Substance: ALEMTUZUMAB
     Indication: CHRONIC LYMPHOCYTIC LEUKAEMIA RECURRENT
     Dosage: 3 MG AT A TIME
     Route: 041
     Dates: start: 20181015, end: 20181015
  2. SOLU-CORTEF [Concomitant]
     Active Substance: HYDROCORTISONE SODIUM SUCCINATE
     Indication: PROPHYLAXIS
     Dosage: 100 MG, QD
     Route: 042
     Dates: start: 20181017, end: 20181017
  3. BLOCKLIN [Concomitant]
     Indication: PROPHYLAXIS
     Dosage: 10 MG, QD
     Route: 048
     Dates: start: 20181012, end: 20181018
  4. PREDONINE [PREDNISOLONE SODIUM SUCCINATE] [Concomitant]
     Indication: PROPHYLAXIS
     Dosage: 15 MG, BID
     Route: 048
     Dates: start: 20181012, end: 20181018
  5. BAKTAR [Concomitant]
     Active Substance: SULFAMETHOXAZOLE\TRIMETHOPRIM
     Indication: PROPHYLAXIS
     Dosage: 1 DF, QD
     Route: 048
     Dates: start: 20181012, end: 20181018
  6. ALEMTUZUMAB [Suspect]
     Active Substance: ALEMTUZUMAB
     Dosage: 10 MG AT A TIME
     Route: 041
     Dates: start: 20181016, end: 20181017
  7. KIPRES [Concomitant]
     Active Substance: MONTELUKAST SODIUM
     Indication: PROPHYLAXIS
     Dosage: 10 MG, QD
     Route: 048
     Dates: start: 20181013, end: 20181017
  8. DIMEDON [ALUMINIUM HYDROXIDE;DIMETICONE;MAGNESIUM HYDROXIDE;MANNITOL] [Concomitant]
     Indication: PROPHYLAXIS
     Dosage: 20 MG, QD
     Route: 042
     Dates: start: 20181015, end: 20181016

REACTIONS (4)
  - Pneumonia [Recovering/Resolving]
  - Infusion related reaction [Recovering/Resolving]
  - Chronic myeloid leukaemia [Recovered/Resolved]
  - Pneumonia [Recovering/Resolving]

NARRATIVE: CASE EVENT DATE: 20181017
